FAERS Safety Report 16841447 (Version 1)
Quarter: 2019Q3

REPORT INFORMATION
  Report Type: Report from Study
  Country: None (occurrence: GB)
  Receive Date: 20190923
  Receipt Date: 20190923
  Transmission Date: 20191005
  Serious: Yes (Hospitalization)
  Sender: FDA-Public Use
  Company Number: GB-ABBVIE-19P-167-2932042-00

PATIENT
  Age: 35 Year
  Sex: Male

DRUGS (4)
  1. TOFACITINIB [Concomitant]
     Active Substance: TOFACITINIB
     Indication: COLITIS ULCERATIVE
     Route: 048
     Dates: start: 20190207
  2. AMITRYPTYLINE [Concomitant]
     Active Substance: AMITRIPTYLINE
     Indication: COLITIS ULCERATIVE
     Route: 048
     Dates: start: 20190124
  3. HUMIRA [Suspect]
     Active Substance: ADALIMUMAB
     Indication: COLITIS ULCERATIVE
     Route: 058
     Dates: start: 20180607, end: 20181220
  4. ZAPAIN [Concomitant]
     Active Substance: ACETAMINOPHEN\CODEINE PHOSPHATE
     Indication: SCIATICA
     Dosage: DOSE: 30/500 MG
     Route: 048
     Dates: start: 20190214

REACTIONS (1)
  - Intervertebral disc protrusion [Recovered/Resolved]

NARRATIVE: CASE EVENT DATE: 20181123
